FAERS Safety Report 7786809-5 (Version None)
Quarter: 2011Q3

REPORT INFORMATION
  Report Type: 
  Country: None (occurrence: None)
  Receive Date: 20110927
  Receipt Date: 20110912
  Transmission Date: 20111222
  Serious: Yes (Other)
  Sender: FDA-Public Use
  Company Number: 2011P1008906

PATIENT
  Age: 72 Year
  Sex: Male

DRUGS (1)
  1. ZONISAMIDE [Suspect]
     Indication: CONVULSION PROPHYLAXIS

REACTIONS (3)
  - LIVER INJURY [None]
  - ROSEOLOVIRUS TEST POSITIVE [None]
  - DRUG RASH WITH EOSINOPHILIA AND SYSTEMIC SYMPTOMS [None]
